FAERS Safety Report 5569539-X (Version None)
Quarter: 2007Q4

REPORT INFORMATION
  Report Type: 
  Country: None (occurrence: None)
  Receive Date: 20071220
  Receipt Date: 20071220
  Transmission Date: 20080405
  Serious: Yes (Disabling)
  Sender: FDA-Public Use
  Company Number: A0699929A

PATIENT
  Age: 42 Year
  Sex: Female

DRUGS (2)
  1. ALLI [Suspect]
     Route: 048
     Dates: start: 20071217, end: 20071217
  2. ASCORBIC ACID [Concomitant]

REACTIONS (7)
  - DIARRHOEA [None]
  - DIZZINESS [None]
  - DYSGEUSIA [None]
  - FEELING ABNORMAL [None]
  - PHARMACEUTICAL PRODUCT COMPLAINT [None]
  - POOR QUALITY SLEEP [None]
  - SYNCOPE [None]
